FAERS Safety Report 11091620 (Version 1)
Quarter: 2015Q2

REPORT INFORMATION
  Report Type: Spontaneous
  Country: FR (occurrence: FR)
  Receive Date: 20150505
  Receipt Date: 20150505
  Transmission Date: 20150821
  Serious: Yes (Hospitalization)
  Sender: FDA-Public Use
  Company Number: FR-EISAI MEDICAL RESEARCH-EC-2015-006519

PATIENT
  Age: 24 Year
  Sex: Female

DRUGS (2)
  1. ZONEGRAN [Suspect]
     Active Substance: ZONISAMIDE
     Dosage: REDUCED BY 25 MG BID EACH WEEK AND DISCONTINUED WITHIN 4 WEEKS
     Route: 048
     Dates: start: 201503, end: 201503
  2. ZONEGRAN [Suspect]
     Active Substance: ZONISAMIDE
     Indication: JUVENILE MYOCLONIC EPILEPSY
     Dosage: UNKNOWN
     Route: 048
     Dates: start: 201410, end: 201503

REACTIONS (1)
  - Suicide attempt [Recovered/Resolved]

NARRATIVE: CASE EVENT DATE: 201412
